FAERS Safety Report 9711742 (Version 2)
Quarter: 2013Q4

REPORT INFORMATION
  Report Type: Spontaneous
  Country: US (occurrence: US)
  Receive Date: 20131126
  Receipt Date: 20131126
  Transmission Date: 20140711
  Serious: No
  Sender: FDA-Public Use
  Company Number: US-BRISTOL-MYERS SQUIBB COMPANY-18798215

PATIENT
  Age: 70 Year
  Sex: Female
  Weight: 96.6 kg

DRUGS (2)
  1. BYDUREON [Suspect]
     Indication: TYPE 2 DIABETES MELLITUS
     Route: 058
  2. METFORMIN [Suspect]
     Dosage: NO OF INJ:2

REACTIONS (7)
  - Injection site discolouration [Unknown]
  - Injection site extravasation [Unknown]
  - Nausea [Unknown]
  - Decreased appetite [Unknown]
  - Dizziness [Unknown]
  - Injection site pain [Recovered/Resolved]
  - Blood glucose increased [Unknown]
